FAERS Safety Report 6761834-1 (Version None)
Quarter: 2010Q2

REPORT INFORMATION
  Report Type: 
  Country: None (occurrence: None)
  Receive Date: 20100607
  Receipt Date: 20100520
  Transmission Date: 20101027
  Serious: Yes (Disabling, Other)
  Sender: FDA-Public Use
  Company Number: ACO_00751_2010

PATIENT
  Age: 36 Year
  Sex: Male
  Weight: 77.1115 kg

DRUGS (3)
  1. AMPYRA [Suspect]
     Indication: MULTIPLE SCLEROSIS
     Dosage: (10 MG BID ORAL)
     Route: 048
     Dates: start: 20100420, end: 20100101
  2. COPAXONE [Concomitant]
  3. BACLOFEN [Concomitant]

REACTIONS (8)
  - ABASIA [None]
  - BALANCE DISORDER [None]
  - CONDITION AGGRAVATED [None]
  - DIZZINESS [None]
  - HEAD DISCOMFORT [None]
  - INSOMNIA [None]
  - SINUS DISORDER [None]
  - VERTIGO [None]
